FAERS Safety Report 23245297 (Version 1)
Quarter: 2023Q4

REPORT INFORMATION
  Report Type: Report from Study
  Country: US (occurrence: None)
  Receive Date: 20231130
  Receipt Date: 20231130
  Transmission Date: 20240110
  Serious: Yes (Other)
  Sender: FDA-Public Use
  Company Number: 2023A266905

PATIENT
  Sex: Female

DRUGS (1)
  1. LYNPARZA [Suspect]
     Active Substance: OLAPARIB
     Indication: Fallopian tube cancer
     Route: 048
     Dates: start: 202304

REACTIONS (11)
  - Cystitis [Unknown]
  - Abdominal wall disorder [Unknown]
  - Nerve compression [Unknown]
  - Peripheral swelling [Unknown]
  - Anaemia [Unknown]
  - Neuropathy peripheral [Unknown]
  - Pruritus [Unknown]
  - Inflammation [Unknown]
  - Arthralgia [Unknown]
  - Nausea [Unknown]
  - Product dose omission issue [Unknown]
